FAERS Safety Report 5669363-3 (Version None)
Quarter: 2008Q1

REPORT INFORMATION
  Report Type: 
  Country: None (occurrence: None)
  Receive Date: 20080317
  Receipt Date: 20080305
  Transmission Date: 20080703
  Serious: Yes (Other)
  Sender: FDA-Public Use
  Company Number: US-MERCK-0706USA03506

PATIENT
  Age: 62 Year
  Sex: Male

DRUGS (5)
  1. FOSAMAX [Suspect]
     Indication: OSTEOPOROSIS
     Route: 048
     Dates: start: 20050601
  2. FOSAMAX [Suspect]
     Route: 065
     Dates: start: 20060724
  3. PHENYTOIN [Concomitant]
     Indication: CONVULSION
     Route: 065
     Dates: start: 19800101
  4. PHENYTOIN [Concomitant]
     Indication: EPILEPSY
     Route: 065
     Dates: start: 19800101
  5. DILANTIN [Suspect]
     Indication: EPILEPSY
     Route: 048

REACTIONS (25)
  - ACQUIRED OESOPHAGEAL WEB [None]
  - BENIGN PROSTATIC HYPERPLASIA [None]
  - CONDUCTIVE DEAFNESS [None]
  - DYSPHAGIA [None]
  - EAR PAIN [None]
  - GASTRITIS [None]
  - GINGIVITIS [None]
  - HERPES SIMPLEX [None]
  - HERPES ZOSTER [None]
  - HERPES ZOSTER OTICUS [None]
  - HIATUS HERNIA [None]
  - HYPERCHOLESTEROLAEMIA [None]
  - HYPERLIPIDAEMIA [None]
  - HYPERPLASIA [None]
  - LABYRINTHITIS [None]
  - MUSCLE SPASMS [None]
  - MUSCULOSKELETAL PAIN [None]
  - MYOFASCIAL PAIN SYNDROME [None]
  - NEURALGIA [None]
  - OSTEOARTHRITIS [None]
  - OTITIS MEDIA ACUTE [None]
  - PAIN IN JAW [None]
  - REFLUX OESOPHAGITIS [None]
  - RESORPTION BONE INCREASED [None]
  - TENDONITIS [None]
